FAERS Safety Report 21614126 (Version 1)
Quarter: 2022Q4

REPORT INFORMATION
  Report Type: Spontaneous
  Country: FR (occurrence: FR)
  Receive Date: 20221118
  Receipt Date: 20221118
  Transmission Date: 20230112
  Serious: Yes (Hospitalization)
  Sender: FDA-Public Use
  Company Number: None

PATIENT
  Age: 71 Year
  Sex: Female
  Weight: 54.6 kg

DRUGS (4)
  1. KISQALI [Suspect]
     Active Substance: RIBOCICLIB
     Indication: Malignant melanoma
     Dosage: 200 MG (1 CP/J PENDANT 21 JOURS )
     Route: 042
     Dates: start: 20220729, end: 20220906
  2. KISQALI [Suspect]
     Active Substance: RIBOCICLIB
     Dosage: 200 MG (1 CP/J PENDANT 21 JOURS )
     Route: 042
     Dates: start: 20220920, end: 20220920
  3. LETROZOLE [Suspect]
     Active Substance: LETROZOLE
     Indication: Breast cancer metastatic
     Dosage: 2.5 MG, QD (1)
     Route: 042
     Dates: start: 20220603
  4. KEYTRUDA [Suspect]
     Active Substance: PEMBROLIZUMAB
     Indication: Malignant melanoma
     Dosage: 400 MG (6 WEEK)
     Route: 042
     Dates: start: 20220825, end: 20220825

REACTIONS (1)
  - Hepatic cytolysis [Recovering/Resolving]

NARRATIVE: CASE EVENT DATE: 20220919
